FAERS Safety Report 23955621 (Version 1)
Quarter: 2024Q2

REPORT INFORMATION
  Report Type: Report from Study
  Country: US (occurrence: US)
  Receive Date: 20240610
  Receipt Date: 20240610
  Transmission Date: 20240715
  Serious: Yes (Other)
  Sender: FDA-Public Use
  Company Number: US-ARGENX-2024-ARGX-US003977

PATIENT

DRUGS (1)
  1. VYVGART HYTRULO [Suspect]
     Active Substance: EFGARTIGIMOD ALFA\HYALURONIDASE-QVFC
     Indication: Myasthenia gravis
     Dosage: UNK
     Route: 058
     Dates: start: 20240127

REACTIONS (6)
  - Facial paralysis [Unknown]
  - Upper-airway cough syndrome [Unknown]
  - Procedural headache [Unknown]
  - Photosensitivity reaction [Unknown]
  - Alopecia [Unknown]
  - Swollen tongue [Unknown]

NARRATIVE: CASE EVENT DATE: 20240531
